FAERS Safety Report 24309157 (Version 1)
Quarter: 2024Q3

REPORT INFORMATION
  Report Type: Spontaneous
  Country: JP (occurrence: JP)
  Receive Date: 20240911
  Receipt Date: 20240911
  Transmission Date: 20241016
  Serious: Yes (Hospitalization)
  Sender: ASTELLAS
  Company Number: JP-ASTELLAS-2024-AER-004513

PATIENT
  Age: 61 Year
  Sex: Female

DRUGS (21)
  1. TACROLIMUS [Suspect]
     Active Substance: TACROLIMUS
     Indication: Systemic lupus erythematosus
     Dosage: 2.5 MG/DAY
     Route: 065
  2. TACROLIMUS [Suspect]
     Active Substance: TACROLIMUS
     Indication: Myelitis
  3. METHYLPREDNISOLONE [Concomitant]
     Active Substance: METHYLPREDNISOLONE
     Indication: Systemic lupus erythematosus
     Route: 065
  4. METHYLPREDNISOLONE [Concomitant]
     Active Substance: METHYLPREDNISOLONE
     Indication: Myelitis
     Route: 065
  5. METHYLPREDNISOLONE [Concomitant]
     Active Substance: METHYLPREDNISOLONE
     Indication: Neuropsychological symptoms
     Dosage: DAILY FOR 3 DAYS (DAYS 1-3)
     Route: 042
  6. METHYLPREDNISOLONE [Concomitant]
     Active Substance: METHYLPREDNISOLONE
     Route: 065
  7. CYCLOPHOSPHAMIDE [Concomitant]
     Active Substance: CYCLOPHOSPHAMIDE
     Indication: Systemic lupus erythematosus
     Dosage: 13 COURSES (A TOTAL OF 8.45 G)
     Route: 042
  8. CYCLOPHOSPHAMIDE [Concomitant]
     Active Substance: CYCLOPHOSPHAMIDE
     Indication: Myelitis
  9. PREDNISOLONE [Concomitant]
     Active Substance: PREDNISOLONE
     Indication: Systemic lupus erythematosus
     Route: 065
  10. PREDNISOLONE [Concomitant]
     Active Substance: PREDNISOLONE
     Indication: Myelitis
     Route: 065
  11. BELIMUMAB [Concomitant]
     Active Substance: BELIMUMAB
     Indication: Systemic lupus erythematosus
     Route: 065
  12. BELIMUMAB [Concomitant]
     Active Substance: BELIMUMAB
     Indication: Myelitis
  13. ETOPOSIDE [Concomitant]
     Active Substance: ETOPOSIDE
     Indication: Haemophagocytic lymphohistiocytosis
     Dosage: FIVE TIMES
     Route: 065
  14. DEXAMETHASONE [Concomitant]
     Active Substance: DEXAMETHASONE
     Indication: Haemophagocytic lymphohistiocytosis
     Route: 065
  15. DEXAMETHASONE [Concomitant]
     Active Substance: DEXAMETHASONE
     Route: 065
  16. CYCLOSPORINE [Concomitant]
     Active Substance: CYCLOSPORINE
     Indication: Haemophagocytic lymphohistiocytosis
     Route: 065
  17. CYCLOSPORINE [Concomitant]
     Active Substance: CYCLOSPORINE
     Route: 065
  18. CYCLOSPORINE [Concomitant]
     Active Substance: CYCLOSPORINE
     Route: 065
  19. CYCLOSPORINE [Concomitant]
     Active Substance: CYCLOSPORINE
     Route: 065
  20. CYCLOSPORINE [Concomitant]
     Active Substance: CYCLOSPORINE
     Route: 065
  21. TOCILIZUMAB [Concomitant]
     Active Substance: TOCILIZUMAB
     Indication: Haemophagocytic lymphohistiocytosis
     Route: 065

REACTIONS (4)
  - Pneumonia [Unknown]
  - Candida infection [Unknown]
  - Candida infection [Unknown]
  - Off label use [Unknown]
